FAERS Safety Report 5744727-8 (Version None)
Quarter: 2008Q2

REPORT INFORMATION
  Report Type: 
  Country: None (occurrence: None)
  Receive Date: 20080516
  Receipt Date: 20080430
  Transmission Date: 20081010
  Serious: Yes (Other)
  Sender: FDA-Public Use
  Company Number: ALL1-2008-01321

PATIENT
  Age: 48 Year
  Sex: Female
  Weight: 84.8 kg

DRUGS (4)
  1. VYVANSE [Suspect]
     Dosage: 30MG, 1X/DAY:QD, ORAL, 50MG, 1X/DAY:QD, ORAL,  70MG, 1X/DAY:QD, ORAL
     Route: 048
     Dates: start: 20080124, end: 20080130
  2. VYVANSE [Suspect]
     Dosage: 30MG, 1X/DAY:QD, ORAL, 50MG, 1X/DAY:QD, ORAL,  70MG, 1X/DAY:QD, ORAL
     Route: 048
     Dates: start: 20080113, end: 20080213
  3. VYVANSE [Suspect]
     Dosage: 30MG, 1X/DAY:QD, ORAL, 50MG, 1X/DAY:QD, ORAL,  70MG, 1X/DAY:QD, ORAL
     Route: 048
     Dates: start: 20080214, end: 20080429
  4. CLARITIN (GLICLAZIDE) [Concomitant]

REACTIONS (5)
  - ANXIETY [None]
  - DEPRESSION [None]
  - MIGRAINE [None]
  - SUICIDAL IDEATION [None]
  - SUSPICIOUSNESS [None]
